FAERS Safety Report 23551188 (Version 1)
Quarter: 2024Q1

REPORT INFORMATION
  Report Type: Spontaneous
  Country: US (occurrence: US)
  Receive Date: 20240222
  Receipt Date: 20240222
  Transmission Date: 20240409
  Serious: No
  Sender: FDA-Public Use
  Company Number: US-PADAGIS-2024PAD00208

PATIENT

DRUGS (1)
  1. DESONIDE [Suspect]
     Active Substance: DESONIDE
     Indication: Psoriasis
     Dosage: UNK
     Route: 061

REACTIONS (2)
  - Disease progression [Unknown]
  - Drug ineffective [Unknown]
